FAERS Safety Report 5035530-5 (Version None)
Quarter: 2006Q2

REPORT INFORMATION
  Report Type: 
  Country: None (occurrence: None)
  Receive Date: 20060526
  Receipt Date: 20060222
  Transmission Date: 20061013
  Serious: No
  Sender: FDA-Public Use
  Company Number: 222552

PATIENT
  Age: 61 Year
  Sex: Female

DRUGS (1)
  1. RAPTIVA [Suspect]
     Indication: PSORIASIS
     Dosage: 0.63 ML, 1/WEEK, SUBCUTANEOUS
     Route: 058
     Dates: start: 20031208

REACTIONS (1)
  - ACCIDENTAL NEEDLE STICK [None]
